FAERS Safety Report 20203283 (Version 4)
Quarter: 2022Q3

REPORT INFORMATION
  Report Type: Report from Study
  Country: US (occurrence: US)
  Receive Date: 20211218
  Receipt Date: 20220809
  Transmission Date: 20221027
  Serious: No
  Sender: FDA-Public Use
  Company Number: US-NOVARTISTESTPH-NVSC2021US289912

PATIENT
  Age: 60 Year
  Sex: Male

DRUGS (3)
  1. ENTRESTO [Suspect]
     Active Substance: SACUBITRIL\VALSARTAN
     Indication: Cardiac failure
     Dosage: 100 MG, BID (49.51 MG)
     Route: 048
     Dates: start: 20210624
  2. ENTRESTO [Suspect]
     Active Substance: SACUBITRIL\VALSARTAN
     Dosage: 1 DOSAGE FORM (97/103 MG)
     Route: 048
  3. ELIQUIS [Suspect]
     Active Substance: APIXABAN
     Indication: Product used for unknown indication
     Dosage: UNK
     Route: 065

REACTIONS (12)
  - Weight increased [Unknown]
  - Pollakiuria [Unknown]
  - Confusional state [Unknown]
  - Pain in extremity [Unknown]
  - Gait inability [Unknown]
  - Condition aggravated [Unknown]
  - Back pain [Unknown]
  - Musculoskeletal pain [Unknown]
  - Sciatica [Unknown]
  - Blood pressure decreased [Recovered/Resolved]
  - Inappropriate schedule of product administration [Unknown]
  - Hypertension [Unknown]

NARRATIVE: CASE EVENT DATE: 20211001
